FAERS Safety Report 5091814-6 (Version None)
Quarter: 2006Q3

REPORT INFORMATION
  Report Type: 
  Country: None (occurrence: None)
  Receive Date: 20060829
  Receipt Date: 20060614
  Transmission Date: 20061208
  Serious: No
  Sender: FDA-Public Use
  Company Number: US-BRISTOL-MYERS SQUIBB COMPANY-13411343

PATIENT
  Age: 54 Year
  Sex: Male

DRUGS (1)
  1. ERBITUX [Suspect]
     Route: 042
     Dates: start: 20060607, end: 20060607

REACTIONS (3)
  - ABDOMINAL PAIN [None]
  - INFUSION RELATED REACTION [None]
  - THROAT TIGHTNESS [None]
